FAERS Safety Report 20375434 (Version 2)
Quarter: 2022Q1

REPORT INFORMATION
  Report Type: Report from Study
  Country: CA (occurrence: CA)
  Receive Date: 20220125
  Receipt Date: 20220223
  Transmission Date: 20220424
  Serious: Yes (Other)
  Sender: FDA-Public Use
  Company Number: CA-JNJFOC-20211233108

PATIENT
  Age: 73 Year
  Sex: Male

DRUGS (1)
  1. SIMPONI [Suspect]
     Active Substance: GOLIMUMAB
     Indication: Rheumatoid arthritis
     Dosage: PROVIDE THE PRODUCT EXPIRATION DATE 31-AUG-2023
     Route: 058
     Dates: start: 20210728

REACTIONS (8)
  - Renal impairment [Recovering/Resolving]
  - Osteoarthritis [Recovering/Resolving]
  - Drug ineffective [Unknown]
  - Sinus congestion [Recovering/Resolving]
  - Insomnia [Recovering/Resolving]
  - Injection site haemorrhage [Recovered/Resolved]
  - Pain in extremity [Recovering/Resolving]
  - Hypoaesthesia [Recovering/Resolving]

NARRATIVE: CASE EVENT DATE: 20210101
